FAERS Safety Report 8869875 (Version 1)
Quarter: 2012Q4

REPORT INFORMATION
  Report Type: Spontaneous
  Country: US (occurrence: None)
  Receive Date: 20121025
  Receipt Date: 20121025
  Transmission Date: 20130627
  Serious: Yes (Other)
  Sender: FDA-Public Use
  Company Number: None

PATIENT
  Sex: Female
  Weight: 61.24 kg

DRUGS (1)
  1. TARCEVA [Suspect]
     Indication: LUNG CANCER
     Dosage: 150 ORAL QD
     Route: 048
     Dates: start: 20120830, end: 20121016

REACTIONS (7)
  - Rash [None]
  - Pruritus [None]
  - Blister [None]
  - Influenza like illness [None]
  - Asthenia [None]
  - Decreased appetite [None]
  - International normalised ratio increased [None]
